FAERS Safety Report 4801175-2 (Version None)
Quarter: 2005Q4

REPORT INFORMATION
  Report Type: 
  Country: None (occurrence: None)
  Receive Date: 20051012
  Receipt Date: 20050929
  Transmission Date: 20060501
  Serious: Yes (Hospitalization)
  Sender: FDA-Public Use
  Company Number: 2005-BP-17288RO

PATIENT
  Age: 22 Year
  Sex: Male

DRUGS (1)
  1. DICLOFENAC (DICLOFENAC) [Suspect]
     Indication: MYALGIA
     Dosage: 50 MG BID (50 MG, 2 IN 1 D), PO
     Route: 048

REACTIONS (6)
  - BLOOD LACTATE DEHYDROGENASE INCREASED [None]
  - ELECTROCARDIOGRAM T WAVE ABNORMAL [None]
  - HEART RATE DECREASED [None]
  - MYALGIA [None]
  - QRS AXIS ABNORMAL [None]
  - RHABDOMYOLYSIS [None]
